FAERS Safety Report 6175554-8 (Version None)
Quarter: 2009Q2

REPORT INFORMATION
  Report Type: 
  Country: None (occurrence: None)
  Receive Date: 20090429
  Receipt Date: 20090420
  Transmission Date: 20091009
  Serious: Yes (Hospitalization)
  Sender: FDA-Public Use
  Company Number: 2009EU001414

PATIENT
  Age: 29 Year
  Sex: Male
  Weight: 65 kg

DRUGS (23)
  1. TACROLIMUS [Suspect]
     Indication: RENAL TRANSPLANT
     Dosage: 4 MG, BID, ORAL
     Route: 048
     Dates: start: 20090313
  2. CELLCEPT [Suspect]
     Indication: RENAL TRANSPLANT
     Dosage: 1 G, BID, ORAL
     Route: 048
     Dates: start: 20090310
  3. PREDISONE (PREDNISONE ACETATE) [Suspect]
     Indication: RENAL TRANSPLANT
     Dosage: 20 MG, UID/QD, ORAL
     Route: 048
     Dates: start: 20090313
  4. DOXAZOSINE (DOXAZOSIN MESILATE) [Concomitant]
  5. ENALAPRIL MALEATE [Concomitant]
  6. CARVEDILOL [Concomitant]
  7. VALSARTAN [Concomitant]
  8. LERCANIDIPINE [Concomitant]
  9. CINACALCET (CINACALCET) [Concomitant]
  10. SEVELAMER (SEVELAMER) [Concomitant]
  11. OMEPRAZOL [Concomitant]
  12. METOCLOPRAMID (METOCLOPRAMIDE) [Concomitant]
  13. METAMIZOL (METAMIZOLE MAGNESIUM) [Concomitant]
  14. MORFIN (MORPHINE) [Concomitant]
  15. ENOXAPARIN SODIUM [Concomitant]
  16. SULFAMETOSAZOL CON TRIMETHOPRIM (SULFAMETHOXAZOLE, TRIMETHOPRIM) [Concomitant]
  17. CEFTRIAXONA (CEFTRIAXONE) [Concomitant]
  18. CLORAZEPATE DIPOTASSIUM [Concomitant]
  19. LORMETAZEPAM (LORMETAZEPAM) [Concomitant]
  20. PARACETAMOL [Concomitant]
  21. BUTYLSCOPOLAMINE (BUTYLSCOPOLAMINE) [Concomitant]
  22. BISOPROLOL FUMARATE [Concomitant]
  23. VALGANCICLOVIR HCL [Concomitant]

REACTIONS (2)
  - PAIN [None]
  - VESICAL FISTULA [None]
